FAERS Safety Report 7626371-0 (Version None)
Quarter: 2011Q3

REPORT INFORMATION
  Report Type: 
  Country: None (occurrence: None)
  Receive Date: 20110721
  Receipt Date: 20110715
  Transmission Date: 20111222
  Serious: Yes (Hospitalization, Other)
  Sender: FDA-Public Use
  Company Number: DE-ABBOTT-11P-062-0733535-00

PATIENT
  Sex: Male
  Weight: 60 kg

DRUGS (3)
  1. HUMIRA [Suspect]
     Indication: CROHN'S DISEASE
     Route: 058
     Dates: start: 20091030
  2. VOLORON [Concomitant]
     Indication: PRODUCT USED FOR UNKNOWN INDICATION
  3. FENISTIL [Concomitant]
     Indication: PRODUCT USED FOR UNKNOWN INDICATION

REACTIONS (6)
  - ABDOMINAL WALL ABSCESS [None]
  - ABDOMINAL ABSCESS [None]
  - ENTEROCUTANEOUS FISTULA [None]
  - CROHN'S DISEASE [None]
  - CHOLELITHIASIS [None]
  - SPLENOMEGALY [None]
